FAERS Safety Report 13663851 (Version 1)
Quarter: 2017Q2

REPORT INFORMATION
  Report Type: Spontaneous
  Country: US (occurrence: US)
  Receive Date: 20170619
  Receipt Date: 20170619
  Transmission Date: 20170830
  Serious: No
  Sender: FDA-Public Use
  Company Number: US-TEVA-757328ACC

PATIENT
  Sex: Female

DRUGS (1)
  1. TRAMADOL HYDROCHLORIDE. [Suspect]
     Active Substance: TRAMADOL HYDROCHLORIDE

REACTIONS (4)
  - Withdrawal syndrome [Unknown]
  - Pain [Unknown]
  - Muscle spasms [Unknown]
  - Insomnia [Unknown]
